FAERS Safety Report 19998331 (Version 1)
Quarter: 2021Q4

REPORT INFORMATION
  Report Type: Spontaneous
  Country: CH (occurrence: CH)
  Receive Date: 20211026
  Receipt Date: 20211026
  Transmission Date: 20220303
  Serious: Yes (Other)
  Sender: FDA-Public Use
  Company Number: None

PATIENT
  Age: 60 Year
  Sex: Male

DRUGS (8)
  1. MORPHINE SULFATE [Suspect]
     Active Substance: MORPHINE SULFATE
     Indication: Product used for unknown indication
     Dosage: UNK(STRENGTH 120 MG)
     Route: 048
     Dates: start: 20210712, end: 20210809
  2. PREGABALIN [Suspect]
     Active Substance: PREGABALIN
     Indication: Product used for unknown indication
     Dosage: STRENGTH 75 MG
     Route: 048
  3. MORPHINE SULFATE [Concomitant]
     Active Substance: MORPHINE SULFATE
     Dosage: UNK(STRENGTH 120 MG)
     Dates: end: 20210711
  4. PANTOZOL [Concomitant]
     Active Substance: PANTOPRAZOLE SODIUM
     Dosage: (STRENGTH 40 MG)
  5. ALDACTONE [Concomitant]
     Active Substance: SPIRONOLACTONE
     Dosage: (STRENGTH 100 MG)
  6. OLANZAPINUM [Concomitant]
     Dosage: (STRENGTH 7.5 MG)
  7. AMISULPRIDE [Concomitant]
     Active Substance: AMISULPRIDE
     Dosage: (STRENGTH 200 MG)
  8. TORSEMIDE [Concomitant]
     Active Substance: TORSEMIDE
     Dosage: (STRENGTH 10 MG)

REACTIONS (2)
  - Apraxia [Recovered/Resolved]
  - Disturbance in attention [Recovered/Resolved]

NARRATIVE: CASE EVENT DATE: 20210809
